FAERS Safety Report 18106682 (Version 2)
Quarter: 2020Q3

REPORT INFORMATION
  Report Type: Report from Study
  Country: JP (occurrence: JP)
  Receive Date: 20200803
  Receipt Date: 20200805
  Transmission Date: 20201103
  Serious: Yes (Death)
  Sender: FDA-Public Use
  Company Number: JP-PFIZER INC-2018499979

PATIENT
  Age: 64 Year
  Sex: Female
  Weight: 48.8 kg

DRUGS (1)
  1. LORLATINIB [Suspect]
     Active Substance: LORLATINIB
     Indication: LUNG NEOPLASM MALIGNANT
     Dosage: 100 MG, DAILY
     Route: 048
     Dates: start: 20181122, end: 20190204

REACTIONS (2)
  - Neoplasm progression [Fatal]
  - Lipids abnormal [Unknown]

NARRATIVE: CASE EVENT DATE: 20190202
